FAERS Safety Report 6125232-6 (Version None)
Quarter: 2009Q1

REPORT INFORMATION
  Report Type: 
  Country: None (occurrence: None)
  Receive Date: 20090320
  Receipt Date: 20090312
  Transmission Date: 20090719
  Serious: Yes (Life-Threatening, Hospitalization, Disabling, Other)
  Sender: FDA-Public Use
  Company Number: GB-RANBAXY-2009RR-21905

PATIENT
  Age: 77 Year
  Sex: Female

DRUGS (10)
  1. CIPROFLOXACIN [Suspect]
     Indication: URINARY TRACT INFECTION
     Dosage: UNK
     Route: 048
  2. SIMVASTATIN [Suspect]
     Dosage: 40 MG, QD
     Route: 065
  3. ACETYLSALICYLIC ACID [Concomitant]
     Dosage: 75 MG, QD
     Route: 065
  4. CIMETIDINE HCL [Concomitant]
     Dosage: 400 MG, QD
     Route: 065
  5. FUROSEMIDE [Concomitant]
     Dosage: 40 MG, QD
     Route: 065
  6. ISOSORBIDE MONONITRATE [Concomitant]
     Dosage: 20 MG, BID
     Route: 065
  7. LEVOTHYROXINE [Concomitant]
     Dosage: 100 UG, QD
     Route: 065
  8. NICORANDIL [Concomitant]
     Dosage: 10 MG, BID
     Route: 065
  9. PINDOLOL [Concomitant]
     Dosage: 2.5 MG, QD
     Route: 065
  10. ASPIRIN [Concomitant]
     Dosage: 75 MG, UNK

REACTIONS (5)
  - BLOOD CREATININE INCREASED [None]
  - CHROMATURIA [None]
  - DRUG INTERACTION [None]
  - MUSCULAR WEAKNESS [None]
  - RHABDOMYOLYSIS [None]
